FAERS Safety Report 4362845-6 (Version None)
Quarter: 2004Q2

REPORT INFORMATION
  Report Type: 
  Country: None (occurrence: None)
  Receive Date: 20040517
  Receipt Date: 20040204
  Transmission Date: 20050107
  Serious: No
  Sender: FDA-Public Use
  Company Number: S04-USA-00967-01

PATIENT
  Age: 73 Year
  Sex: Male

DRUGS (8)
  1. NAMENDA [Suspect]
     Indication: DEMENTIA ALZHEIMER'S TYPE
     Dosage: 10 MG QD PO
     Route: 048
     Dates: start: 20040119
  2. PREDNISONE [Concomitant]
  3. PROTONIX [Concomitant]
  4. FLOMAX [Concomitant]
  5. DYAZIDE [Concomitant]
  6. ARICEPT [Concomitant]
  7. DUONEB [Concomitant]
  8. SINGULAIR [Concomitant]

REACTIONS (1)
  - DYSPNOEA [None]
